FAERS Safety Report 9172193 (Version 4)
Quarter: 2015Q1

REPORT INFORMATION
  Report Type: Spontaneous
  Country: CA (occurrence: CA)
  Receive Date: 20130319
  Receipt Date: 20150310
  Transmission Date: 20150721
  Serious: Yes (Other)
  Sender: FDA-Public Use
  Company Number: CA-009507513-1303CAN008028

PATIENT
  Age: 51 Year
  Sex: Male
  Weight: 75 kg

DRUGS (6)
  1. VICTRELIS [Suspect]
     Active Substance: BOCEPREVIR
     Indication: HEPATITIS C
     Dosage: 800 MG, TID
     Route: 048
     Dates: start: 20120921, end: 20121124
  2. RIBAVIRIN. [Suspect]
     Active Substance: RIBAVIRIN
     Indication: HEPATITIS C
     Dosage: 1000 MG, QD
     Route: 048
     Dates: start: 20120822, end: 20121124
  3. TYLENOL [Concomitant]
     Active Substance: ACETAMINOPHEN
     Indication: PAIN
     Dosage: 300 MG, 1 IN 2 DAYS
     Route: 048
     Dates: start: 20120822, end: 20121124
  4. PEGASYS [Suspect]
     Active Substance: PEGINTERFERON ALFA-2A
     Indication: HEPATITIS C
     Dosage: 180 MICROGRAM, QW
     Route: 058
     Dates: start: 20120822, end: 20121121
  5. TECTA [Concomitant]
     Active Substance: PANTOPRAZOLE MAGNESIUM
     Indication: GASTROOESOPHAGEAL REFLUX DISEASE
     Dosage: 40 MG, QD
     Route: 048
  6. ADVIL [Concomitant]
     Active Substance: IBUPROFEN
     Indication: HEADACHE
     Dosage: 300 MG, QD
     Route: 048
     Dates: start: 20120822, end: 20121124

REACTIONS (10)
  - Adenocarcinoma [Unknown]
  - Oesophageal neoplasm [Unknown]
  - Gastrointestinal neoplasm [Unknown]
  - Adenocarcinoma gastric [Unknown]
  - Metastases to central nervous system [Not Recovered/Not Resolved]
  - Headache [Recovered/Resolved]
  - Metastases to lymph nodes [Not Recovered/Not Resolved]
  - Rectal haemorrhage [Unknown]
  - Faeces discoloured [Unknown]
  - Tumour necrosis [Unknown]

NARRATIVE: CASE EVENT DATE: 20120923
